FAERS Safety Report 7168251-3 (Version None)
Quarter: 2010Q4

REPORT INFORMATION
  Report Type: 
  Country: None (occurrence: None)
  Receive Date: 20101216
  Receipt Date: 20101209
  Transmission Date: 20110411
  Serious: Yes (Other)
  Sender: FDA-Public Use
  Company Number: DE-ABBOTT-10P-062-0688746-00

PATIENT
  Age: 54 Year
  Sex: Male
  Weight: 113 kg

DRUGS (7)
  1. HUMIRA [Suspect]
     Indication: ANKYLOSING SPONDYLITIS
     Route: 058
     Dates: start: 20100517, end: 20100801
  2. HUMIRA [Suspect]
     Route: 058
     Dates: start: 20100801, end: 20101114
  3. L-THYROX [Concomitant]
     Indication: AUTOIMMUNE THYROIDITIS
  4. PAROXETINE HCL [Concomitant]
     Indication: DEPRESSION
  5. VIGANTOLETTEN [Concomitant]
     Indication: PRODUCT USED FOR UNKNOWN INDICATION
  6. VITAMIN B [Concomitant]
     Indication: PRODUCT USED FOR UNKNOWN INDICATION
  7. INDOMETACIN [Concomitant]
     Indication: PRODUCT USED FOR UNKNOWN INDICATION

REACTIONS (3)
  - ILL-DEFINED DISORDER [None]
  - MUSCULAR WEAKNESS [None]
  - PAIN [None]
